APPROVED DRUG PRODUCT: DILTIAZEM HYDROCHLORIDE
Active Ingredient: DILTIAZEM HYDROCHLORIDE
Strength: 360MG
Dosage Form/Route: CAPSULE, EXTENDED RELEASE;ORAL
Application: A202463 | Product #001 | TE Code: AB3
Applicant: ACTAVIS ELIZABETH LLC
Approved: Dec 7, 2012 | RLD: No | RS: No | Type: RX